FAERS Safety Report 8028062-3 (Version None)
Quarter: 2012Q1

REPORT INFORMATION
  Report Type: 
  Country: None (occurrence: None)
  Receive Date: 20120106
  Receipt Date: 20111227
  Transmission Date: 20120608
  Serious: Yes (Other)
  Sender: FDA-Public Use
  Company Number: DE-UCBSA-027345

PATIENT
  Sex: Female

DRUGS (2)
  1. KEPPRA [Suspect]
     Dosage: ON 500 MG DOSE AFTER 6TH WEEK OF PREGNANCY
  2. KEPPRA [Suspect]
     Dosage: DOSE OF 1000 MG UP TO THE 6TH WEEK OF PREGNANCY

REACTIONS (3)
  - MATERNAL EXPOSURE DURING PREGNANCY [None]
  - CAESAREAN SECTION [None]
  - LACTATION DISORDER [None]
